FAERS Safety Report 21990644 (Version 1)
Quarter: 2023Q1

REPORT INFORMATION
  Report Type: Spontaneous
  Country: PL (occurrence: PL)
  Receive Date: 20230214
  Receipt Date: 20230214
  Transmission Date: 20230418
  Serious: Yes (Death)
  Sender: FDA-Public Use
  Company Number: PL-002147023-NVSC2023PL032337

PATIENT

DRUGS (6)
  1. RITUXIMAB [Suspect]
     Active Substance: RITUXIMAB
     Indication: Central nervous system lymphoma
     Dosage: 375 MG/M2, CYCLIC (DAY 1, ONCE A WEEK FOR SIX DOSES, 7 14-DAY CYCLES INDUCTION)
     Route: 065
  2. METHOTREXATE [Suspect]
     Active Substance: METHOTREXATE
     Indication: Central nervous system lymphoma
     Dosage: 3.5 G/M2, CYCLIC (DAY 2, 2 H INFUSION, 7 14-DAY CYCLES INDUCTION)
     Route: 065
  3. CYTARABINE [Suspect]
     Active Substance: CYTARABINE
     Indication: Central nervous system lymphoma
     Dosage: CYCLIC (28-DAY CYCLES, DAY 1-2, 2.0 G/M2 EVERY 12H (TOTAL FOUR DOSES))
     Route: 065
  4. IFOSFAMIDE [Suspect]
     Active Substance: IFOSFAMIDE
     Indication: Central nervous system lymphoma
     Dosage: 1500 MG/M2, CYCLIC (DAY 4-6, 7 14-DAY CYCLES INDUCTION)
     Route: 065
  5. VINCRISTINE [Suspect]
     Active Substance: VINCRISTINE
     Indication: Central nervous system lymphoma
     Dosage: 1.4 MG/M2, CYCLIC (MAX 2 MG, DAY 2, 7 14-DAY CYCLES INDUCTION)
     Route: 065
  6. THIOTEPA [Suspect]
     Active Substance: THIOTEPA
     Indication: Central nervous system lymphoma
     Dosage: 30 MG/M2, CYCLIC (ADDED ON DAY 3, IN SECOND VERSION)
     Route: 065

REACTIONS (1)
  - Neurotoxicity [Fatal]
